FAERS Safety Report 10752180 (Version 2)
Quarter: 2015Q4

REPORT INFORMATION
  Report Type: Report from Study
  Country: US (occurrence: US)
  Receive Date: 20150130
  Receipt Date: 20151005
  Transmission Date: 20160304
  Serious: Yes (Hospitalization, Other)
  Sender: FDA-Public Use
  Company Number: US-GILEAD-2015-0134372

PATIENT
  Age: 67 Year
  Sex: Female

DRUGS (1)
  1. AMBRISENTAN [Suspect]
     Active Substance: AMBRISENTAN
     Indication: COR PULMONALE CHRONIC
     Dosage: 5 MG, QD
     Route: 065
     Dates: start: 20120403

REACTIONS (12)
  - Splenomegaly [Unknown]
  - Influenza [Unknown]
  - Cardiac pacemaker insertion [Unknown]
  - Iron deficiency [Unknown]
  - Pneumonia [Unknown]
  - Mitral valve replacement [Unknown]
  - Decreased appetite [Unknown]
  - White blood cell count decreased [Unknown]
  - Vascular graft [Unknown]
  - Cholelithiasis [Unknown]
  - Gallbladder operation [Unknown]
  - Hepatic hypertrophy [Unknown]

NARRATIVE: CASE EVENT DATE: 2015
